FAERS Safety Report 7062872-4 (Version None)
Quarter: 2010Q4

REPORT INFORMATION
  Report Type: 
  Country: None (occurrence: None)
  Receive Date: 20101026
  Receipt Date: 20100305
  Transmission Date: 20110411
  Serious: No
  Sender: FDA-Public Use
  Company Number: US-PFIZER INC-2010008949

PATIENT
  Sex: Male

DRUGS (7)
  1. LIPITOR [Suspect]
     Dosage: 20 MG, DAILY
  2. ACETYLSALICYLIC ACID [Suspect]
     Dosage: UNK
  3. PROTONIX [Suspect]
     Dosage: UNK
  4. SYNTHROID [Suspect]
     Dosage: UNK
  5. ACYCLOVIR SODIUM [Suspect]
     Dosage: UNK
  6. ALLEGRA [Suspect]
     Dosage: UNK
  7. ACYCLOVIR SODIUM [Suspect]

REACTIONS (1)
  - DYSGEUSIA [None]
